FAERS Safety Report 5590020-6 (Version None)
Quarter: 2008Q1

REPORT INFORMATION
  Report Type: 
  Country: None (occurrence: None)
  Receive Date: 20080114
  Receipt Date: 20070104
  Transmission Date: 20080703
  Serious: No
  Sender: FDA-Public Use
  Company Number: US-ABBOTT-07P-163-0355474-00

PATIENT
  Age: 2 Year

DRUGS (1)
  1. OMNICEF [Suspect]
     Indication: EAR INFECTION
     Route: 048

REACTIONS (2)
  - DRUG INEFFECTIVE [None]
  - EAR INFECTION [None]
